FAERS Safety Report 6174581-4 (Version None)
Quarter: 2009Q2

REPORT INFORMATION
  Report Type: 
  Country: None (occurrence: None)
  Receive Date: 20090430
  Receipt Date: 20080804
  Transmission Date: 20091009
  Serious: No
  Sender: FDA-Public Use
  Company Number: US-ASTRAZENECA-2008UW15929

PATIENT
  Age: 60 Year
  Sex: Female
  Weight: 83.9 kg

DRUGS (10)
  1. NEXIUM [Suspect]
     Indication: GASTRIC PH DECREASED
     Route: 048
  2. NEXIUM [Suspect]
     Indication: VOMITING PROJECTILE
     Route: 048
  3. METFORMIN HCL [Concomitant]
  4. GLIMEPIRIDE [Concomitant]
  5. SYNTHROID [Concomitant]
  6. TRIAMTERINE [Concomitant]
  7. ENALATRIL [Concomitant]
  8. LIPITOR [Concomitant]
  9. LEVEMIR [Concomitant]
  10. ASPIRIN [Concomitant]

REACTIONS (3)
  - BLOOD GLUCOSE INCREASED [None]
  - EYE PRURITUS [None]
  - PERIPHERAL COLDNESS [None]
